FAERS Safety Report 6487451-9 (Version None)
Quarter: 2009Q4

REPORT INFORMATION
  Report Type: 
  Country: None (occurrence: None)
  Receive Date: 20091123
  Receipt Date: 20090923
  Transmission Date: 20100525
  Serious: No
  Sender: FDA-Public Use
  Company Number: 8052555

PATIENT
  Age: 27 Year
  Sex: Male

DRUGS (3)
  1. CIMZIA [Suspect]
     Indication: CROHN'S DISEASE
     Dosage: 400 MG SC
     Route: 058
     Dates: start: 20090702
  2. METFORMIN HCL [Concomitant]
  3. MULTI-VITAMIN [Concomitant]

REACTIONS (10)
  - ABDOMINAL PAIN [None]
  - COLD SWEAT [None]
  - DIARRHOEA [None]
  - DRUG INEFFECTIVE [None]
  - FAECES DISCOLOURED [None]
  - FATIGUE [None]
  - HAEMATOCHEZIA [None]
  - HEART RATE IRREGULAR [None]
  - NAUSEA [None]
  - VISION BLURRED [None]
